FAERS Safety Report 4901751-2 (Version None)
Quarter: 2006Q1

REPORT INFORMATION
  Report Type: 
  Country: None (occurrence: None)
  Receive Date: 20060202
  Receipt Date: 20060123
  Transmission Date: 20060701
  Serious: Yes (Other)
  Sender: FDA-Public Use
  Company Number: 2006011189

PATIENT
  Sex: Male

DRUGS (2)
  1. NATURAL CITRUS LISTERINE (MENTHOL, METHYL SALICYLATE, EUCALYPTOL, THYM [Suspect]
     Dosage: 3/4 OF THE BOTTLE ONCE, ORAL
     Route: 048
     Dates: start: 20060123, end: 20060123
  2. ANTIDEPRESSANTS (ANTIDEPRESSANTS) [Concomitant]

REACTIONS (1)
  - ABNORMAL BEHAVIOUR [None]
